FAERS Safety Report 4814046-2 (Version None)
Quarter: 2005Q4

REPORT INFORMATION
  Report Type: 
  Country: None (occurrence: None)
  Receive Date: 20051028
  Receipt Date: 20050630
  Transmission Date: 20060501
  Serious: No
  Sender: FDA-Public Use
  Company Number: US-GLAXOSMITHKLINE-A0564752A

PATIENT
  Sex: Male

DRUGS (6)
  1. SEREVENT [Suspect]
     Indication: CHRONIC OBSTRUCTIVE PULMONARY DISEASE
     Dosage: 1PUFF TWICE PER DAY
     Route: 055
  2. OXYBUTYNIN CHLORIDE [Concomitant]
  3. CLONIDINE [Concomitant]
  4. PANTOPRAZOLE [Concomitant]
  5. ZOCOR [Concomitant]
  6. XALATAN [Concomitant]

REACTIONS (1)
  - ALOPECIA [None]
